FAERS Safety Report 20991170 (Version 1)
Quarter: 2022Q2

REPORT INFORMATION
  Report Type: Spontaneous
  Country: ES (occurrence: ES)
  Receive Date: 20220622
  Receipt Date: 20220622
  Transmission Date: 20220720
  Serious: Yes (Other)
  Sender: FDA-Public Use
  Company Number: ES-AEMPS-1203449

PATIENT
  Age: 49 Year
  Sex: Female
  Weight: 58 kg

DRUGS (5)
  1. ELETRIPTAN [Suspect]
     Active Substance: ELETRIPTAN
     Indication: Abdominal migraine
     Dosage: UNK ( 2 DOSES AT 2-HOUR INTERVALS) (4 TABLETS)
     Route: 048
     Dates: start: 20220406
  2. TOPIRAMATE [Interacting]
     Active Substance: TOPIRAMATE
     Indication: Migraine
     Dosage: UNK (1 TABLET MORNING AND NIGHT)
     Route: 048
     Dates: start: 20220204, end: 20220515
  3. NAPROXEN SODIUM [Concomitant]
     Active Substance: NAPROXEN SODIUM
     Indication: Migraine
     Dosage: UNK
     Route: 048
     Dates: start: 20220324
  4. LEVOTHYROXINE SODIUM [Concomitant]
     Active Substance: LEVOTHYROXINE SODIUM
     Indication: Post procedural hypothyroidism
     Dosage: UNK
     Route: 048
     Dates: start: 20211007
  5. OMEPRAZOLE [Concomitant]
     Active Substance: OMEPRAZOLE
     Indication: Gastroduodenal ulcer
     Dosage: UNK
     Route: 065

REACTIONS (6)
  - Abdominal pain [Recovering/Resolving]
  - Paraesthesia [Recovering/Resolving]
  - Diarrhoea [Recovering/Resolving]
  - Muscle spasms [Recovering/Resolving]
  - Abdominal distension [Recovering/Resolving]
  - Aerophagia [Recovering/Resolving]

NARRATIVE: CASE EVENT DATE: 20220406
